FAERS Safety Report 6094725-2 (Version None)
Quarter: 2009Q1

REPORT INFORMATION
  Report Type: 
  Country: None (occurrence: None)
  Receive Date: 20090225
  Receipt Date: 20090211
  Transmission Date: 20090719
  Serious: Yes (Other)
  Sender: FDA-Public Use
  Company Number: 2008S1022880

PATIENT
  Age: 2 Year
  Sex: Female
  Weight: 11 kg

DRUGS (9)
  1. AMNESTEEM [Suspect]
     Indication: BRAIN NEOPLASM MALIGNANT
  2. AMNESTEEM [Suspect]
     Indication: BRAIN NEOPLASM MALIGNANT
     Dosage: UNKNOWN
  3. AMNESTEEM [Suspect]
     Indication: BRAIN NEOPLASM MALIGNANT
  4. SOTRET [Suspect]
     Indication: BRAIN NEOPLASM MALIGNANT
  5. SOTRET [Suspect]
     Indication: BRAIN NEOPLASM MALIGNANT
  6. BACTRIM [Concomitant]
  7. ZOFRAN [Concomitant]
  8. PREVACID [Concomitant]
  9. PHENOBARBITAL TAB [Concomitant]

REACTIONS (4)
  - DISEASE RECURRENCE [None]
  - FOOD INTOLERANCE [None]
  - IRRITABILITY [None]
  - NAUSEA [None]
